FAERS Safety Report 5455839-0 (Version None)
Quarter: 2007Q3

REPORT INFORMATION
  Report Type: 
  Country: None (occurrence: None)
  Receive Date: 20070918
  Receipt Date: 20070702
  Transmission Date: 20080115
  Serious: Yes (Other)
  Sender: FDA-Public Use
  Company Number: US-ASTRAZENECA-2006UW22797

PATIENT
  Age: 639 Month
  Sex: Male
  Weight: 115.9 kg

DRUGS (1)
  1. SEROQUEL [Suspect]
     Indication: POST-TRAUMATIC STRESS DISORDER
     Route: 048
     Dates: start: 20040708, end: 20060619

REACTIONS (2)
  - DIABETES MELLITUS [None]
  - PANCREATITIS [None]
